FAERS Safety Report 20733532 (Version 2)
Quarter: 2022Q2

REPORT INFORMATION
  Report Type: Spontaneous
  Country: US (occurrence: US)
  Receive Date: 20220421
  Receipt Date: 20220505
  Transmission Date: 20220721
  Serious: Yes (Other)
  Sender: FDA-Public Use
  Company Number: US-Hikma Pharmaceuticals USA Inc.-US-H14001-22-00998

PATIENT
  Age: 47 Year
  Sex: Male

DRUGS (1)
  1. DESVENLAFAXINE [Suspect]
     Active Substance: DESVENLAFAXINE
     Indication: Product used for unknown indication
     Route: 065

REACTIONS (7)
  - Dyspepsia [Unknown]
  - Product residue present [Unknown]
  - Underdose [Unknown]
  - Malaise [Unknown]
  - Condition aggravated [Unknown]
  - Withdrawal syndrome [Unknown]
  - Drug level fluctuating [Unknown]
